FAERS Safety Report 13747600 (Version 1)
Quarter: 2017Q3

REPORT INFORMATION
  Report Type: Report from Study
  Country: US (occurrence: US)
  Receive Date: 20170712
  Receipt Date: 20170712
  Transmission Date: 20171127
  Serious: Yes (Hospitalization)
  Sender: FDA-Public Use
  Company Number: US-VIFOR (INTERNATIONAL) INC.-VIT-2017-07354

PATIENT
  Sex: Male

DRUGS (6)
  1. LACTOSE [Concomitant]
     Active Substance: LACTOSE
     Indication: BLOOD GLUCOSE
  2. NORCO [Concomitant]
     Active Substance: ACETAMINOPHEN\HYDROCODONE BITARTRATE
     Indication: PAIN
  3. TARKA [Concomitant]
     Active Substance: TRANDOLAPRIL\VERAPAMIL HYDROCHLORIDE
     Indication: BLOOD PRESSURE MEASUREMENT
     Dosage: 4/240
  4. ASPIRIN. [Concomitant]
     Active Substance: ASPIRIN
  5. VELTASSA [Suspect]
     Active Substance: PATIROMER
     Indication: BLOOD POTASSIUM INCREASED
     Route: 048
     Dates: start: 20170610, end: 20170628
  6. CRESTOR [Concomitant]
     Active Substance: ROSUVASTATIN CALCIUM

REACTIONS (7)
  - Blood creatinine increased [Unknown]
  - Disorientation [Unknown]
  - Blood sodium decreased [Unknown]
  - Musculoskeletal pain [Unknown]
  - Renal disorder [Not Recovered/Not Resolved]
  - Polydipsia [Unknown]
  - Blood magnesium decreased [Unknown]

NARRATIVE: CASE EVENT DATE: 2017
